FAERS Safety Report 10901190 (Version 1)
Quarter: 2015Q1

REPORT INFORMATION
  Report Type: Spontaneous
  Country: US (occurrence: None)
  Receive Date: 20150303
  Receipt Date: 20150303
  Transmission Date: 20150721
  Serious: No
  Sender: FDA-Public Use
  Company Number: None

PATIENT
  Age: 65 Year
  Sex: Male
  Weight: 126 kg

DRUGS (1)
  1. IMIPRAMINE [Suspect]
     Active Substance: IMIPRAMINE
     Indication: PERIPHERAL SENSORY NEUROPATHY
     Dates: start: 20150127, end: 20150224

REACTIONS (6)
  - Syncope [None]
  - Asthenia [None]
  - Orthostatic hypotension [None]
  - Fall [None]
  - Hypovolaemia [None]
  - Loss of consciousness [None]

NARRATIVE: CASE EVENT DATE: 20150220
